FAERS Safety Report 25844249 (Version 1)
Quarter: 2025Q3

REPORT INFORMATION
  Report Type: Spontaneous
  Country: US (occurrence: US)
  Receive Date: 20250925
  Receipt Date: 20250925
  Transmission Date: 20251020
  Serious: Yes (Hospitalization, Other)
  Sender: NOVITIUM PHARMA
  Company Number: US-NOVITIUMPHARMA-2025USNVP02401

PATIENT
  Age: 19 Year
  Sex: Female

DRUGS (6)
  1. PREDNISONE [Suspect]
     Active Substance: PREDNISONE
     Indication: B-cell type acute leukaemia
  2. ASPARAGINASE [Concomitant]
     Active Substance: ASPARAGINASE
     Indication: B-cell type acute leukaemia
  3. GEMFIBROZIL [Concomitant]
     Active Substance: GEMFIBROZIL
  4. FISH OIL [Concomitant]
     Active Substance: FISH OIL
  5. FENOFIBRATE [Concomitant]
     Active Substance: FENOFIBRATE
  6. INSULIN NOS [Concomitant]
     Active Substance: INSULIN NOS
     Route: 042

REACTIONS (3)
  - Adrenal insufficiency [Unknown]
  - Cerebral venous thrombosis [Unknown]
  - Steroid diabetes [Unknown]
